FAERS Safety Report 23849127 (Version 7)
Quarter: 2025Q3

REPORT INFORMATION
  Report Type: Spontaneous
  Country: US (occurrence: US)
  Receive Date: 20240513
  Receipt Date: 20250828
  Transmission Date: 20251020
  Serious: No
  Sender: SANOFI AVENTIS
  Company Number: US-SA-SAC20240508001024

PATIENT
  Age: 83 Year
  Sex: Female

DRUGS (1)
  1. DUPIXENT [Suspect]
     Active Substance: DUPILUMAB
     Indication: Dermatitis atopic
     Dosage: 300 MG, QOW
     Route: 058

REACTIONS (14)
  - Dry mouth [Unknown]
  - Injection site discharge [Unknown]
  - Decubitus ulcer [Not Recovered/Not Resolved]
  - Radiation injury [Unknown]
  - Dry eye [Unknown]
  - Injection site bruising [Unknown]
  - Eczema [Unknown]
  - Pruritus [Unknown]
  - Rash pruritic [Unknown]
  - Skin irritation [Unknown]
  - Rash erythematous [Unknown]
  - Inappropriate schedule of product administration [Unknown]
  - Product prescribing issue [Unknown]
  - Drug ineffective [Unknown]

NARRATIVE: CASE EVENT DATE: 20250801
